FAERS Safety Report 5916014-6 (Version None)
Quarter: 2008Q4

REPORT INFORMATION
  Report Type: 
  Country: None (occurrence: None)
  Receive Date: 20081013
  Receipt Date: 20080929
  Transmission Date: 20090506
  Serious: Yes (Other)
  Sender: FDA-Public Use
  Company Number: US-JNJFOC-20080704846

PATIENT
  Sex: Female
  Weight: 112.04 kg

DRUGS (17)
  1. REMICADE [Suspect]
     Route: 042
  2. REMICADE [Suspect]
     Indication: RHEUMATOID ARTHRITIS
     Route: 042
  3. DIOVAN [Concomitant]
     Indication: HYPERTENSION
  4. ALLOPURINOL [Concomitant]
     Indication: GOUT
  5. EFFEXOR [Concomitant]
  6. SYNTHROID [Concomitant]
     Indication: HYPOTHYROIDISM
  7. PREDNISONE [Concomitant]
     Indication: RHEUMATOID ARTHRITIS
  8. OXYCODONE HCL [Concomitant]
     Indication: PAIN
  9. ACTONEL [Concomitant]
     Indication: OSTEOPOROSIS PROPHYLAXIS
  10. ASPIRIN [Concomitant]
  11. LORAZEPAM [Concomitant]
  12. VITAMIN D [Concomitant]
     Dosage: 50, 000 UNITS EVERY THREE WEEKS
  13. VITAMIN B-12 [Concomitant]
  14. FORADIL [Concomitant]
  15. SULFASALAZINE [Concomitant]
     Dosage: 6 TABLETS PER DAY
     Route: 048
  16. REGLAN [Concomitant]
  17. TESTOSTERONE [Concomitant]

REACTIONS (11)
  - COUGH [None]
  - DYSPNOEA [None]
  - FATIGUE [None]
  - HEADACHE [None]
  - INFLUENZA LIKE ILLNESS [None]
  - NAUSEA [None]
  - ORAL HERPES [None]
  - PYREXIA [None]
  - VOMITING [None]
  - WEIGHT DECREASED [None]
  - WHEEZING [None]
